FAERS Safety Report 5832717-6 (Version None)
Quarter: 2008Q3

REPORT INFORMATION
  Report Type: 
  Country: None (occurrence: None)
  Receive Date: 20080731
  Receipt Date: 20080722
  Transmission Date: 20090109
  Serious: Yes (Life-Threatening, Other)
  Sender: FDA-Public Use
  Company Number: A-JP2008-20824

PATIENT
  Age: 61 Year
  Sex: Male

DRUGS (2)
  1. TRACLEER [Suspect]
     Indication: PULMONARY ARTERIAL HYPERTENSION
     Dosage: 125 MG, BID, ORAL
     Route: 048
  2. EPOPROSTENOL SODIUM [Suspect]

REACTIONS (5)
  - ALANINE AMINOTRANSFERASE INCREASED [None]
  - ANTI-NEUTROPHIL CYTOPLASMIC ANTIBODY POSITIVE VASCULITIS [None]
  - ASPARTATE AMINOTRANSFERASE INCREASED [None]
  - BLOOD BILIRUBIN INCREASED [None]
  - LIVER FUNCTION TEST ABNORMAL [None]
